FAERS Safety Report 8267303-4 (Version None)
Quarter: 2012Q2

REPORT INFORMATION
  Report Type: 
  Country: None (occurrence: None)
  Receive Date: 20120409
  Receipt Date: 20120331
  Transmission Date: 20120825
  Serious: Yes (Hospitalization, Disabling, Other)
  Sender: FDA-Public Use
  Company Number: US-ASTELLAS-2012US002837

PATIENT
  Sex: Male
  Weight: 85 kg

DRUGS (2)
  1. FLAGYL [Suspect]
     Indication: PRODUCT USED FOR UNKNOWN INDICATION
     Dosage: UNK
     Route: 065
  2. PROGRAF [Suspect]
     Indication: LIVER TRANSPLANT
     Dosage: 2 MG, BID
     Route: 048
     Dates: start: 20010101

REACTIONS (10)
  - INTRACRANIAL ANEURYSM [None]
  - NEUROPATHY PERIPHERAL [None]
  - ANXIETY [None]
  - INTESTINAL PERFORATION [None]
  - RENAL DISORDER [None]
  - IATROGENIC INJURY [None]
  - DYSGRAPHIA [None]
  - ABASIA [None]
  - DISABILITY [None]
  - MEMORY IMPAIRMENT [None]
